FAERS Safety Report 7047628-0 (Version None)
Quarter: 2010Q4

REPORT INFORMATION
  Report Type: 
  Country: None (occurrence: None)
  Receive Date: 20101015
  Receipt Date: 20101005
  Transmission Date: 20110411
  Serious: Yes (Other)
  Sender: FDA-Public Use
  Company Number: US-WATSON-2010-13290

PATIENT
  Sex: Female
  Weight: 63.492 kg

DRUGS (2)
  1. LISINOPRIL [Suspect]
     Indication: HYPERTENSION
     Dosage: 5 MG, DAILY
     Route: 048
     Dates: start: 20091101, end: 20100501
  2. LISINOPRIL [Suspect]
     Indication: HYPERTENSION
     Dosage: 1 TABLET, DAILY FOR ONE WEEK
     Route: 048

REACTIONS (22)
  - ALOPECIA [None]
  - CRYING [None]
  - DERMAL CYST [None]
  - GENERALISED OEDEMA [None]
  - INSOMNIA [None]
  - MUSCLE SPASMS [None]
  - MYALGIA [None]
  - PALPITATIONS [None]
  - PHARYNGEAL OEDEMA [None]
  - PRURITUS GENERALISED [None]
  - RASH GENERALISED [None]
  - RESTLESS LEGS SYNDROME [None]
  - RESTLESSNESS [None]
  - SCAR [None]
  - SELF ESTEEM DECREASED [None]
  - SKIN DISCOLOURATION [None]
  - SKIN DYSTROPHY [None]
  - SKIN EXFOLIATION [None]
  - STEVENS-JOHNSON SYNDROME [None]
  - URTICARIA [None]
  - WEIGHT INCREASED [None]
  - WOUND DRAINAGE [None]
